FAERS Safety Report 5695844-2 (Version None)
Quarter: 2008Q2

REPORT INFORMATION
  Report Type: 
  Country: None (occurrence: None)
  Receive Date: 20080407
  Receipt Date: 20080327
  Transmission Date: 20081010
  Serious: Yes (Other)
  Sender: FDA-Public Use
  Company Number: SE-JNJFOC-20080306818

PATIENT
  Age: 43 Year
  Sex: Female

DRUGS (3)
  1. PROPULSID [Suspect]
     Indication: CONSTIPATION
     Route: 048
  2. PROGESTERON [Concomitant]
     Route: 065
  3. PROPAVAN [Concomitant]
     Route: 065

REACTIONS (7)
  - ALOPECIA [None]
  - BLOOD IRON INCREASED [None]
  - OCULAR HYPERAEMIA [None]
  - OSTEOPOROSIS [None]
  - POLLAKIURIA [None]
  - VISUAL DISTURBANCE [None]
  - WHITE BLOOD CELL COUNT INCREASED [None]
